FAERS Safety Report 7978497-X (Version None)
Quarter: 2011Q4

REPORT INFORMATION
  Report Type: 
  Country: None (occurrence: None)
  Receive Date: 20111214
  Receipt Date: 20111207
  Transmission Date: 20120403
  Serious: Yes (Other)
  Sender: FDA-Public Use
  Company Number: JP-PFIZER INC-2011298031

PATIENT
  Age: 75 Year
  Sex: Male

DRUGS (1)
  1. SUNITINIB MALATE [Suspect]
     Indication: PANCREATIC NEUROENDOCRINE TUMOUR
     Dosage: 32.5 MG, UNK

REACTIONS (1)
  - BONE MARROW FAILURE [None]
